FAERS Safety Report 23014762 (Version 2)
Quarter: 2024Q3

REPORT INFORMATION
  Report Type: Report from Study
  Country: US (occurrence: US)
  Receive Date: 20231002
  Receipt Date: 20240814
  Transmission Date: 20241016
  Serious: Yes (Other)
  Sender: UCB
  Company Number: US-UCBSA-2023042342

PATIENT
  Age: 61 Year
  Sex: Female

DRUGS (3)
  1. CERTOLIZUMAB PEGOL [Suspect]
     Active Substance: CERTOLIZUMAB PEGOL
     Indication: Rheumatoid arthritis
     Dosage: UNK
  2. CERTOLIZUMAB PEGOL [Suspect]
     Active Substance: CERTOLIZUMAB PEGOL
     Dosage: 400 MILLIGRAM AT WEEK 0
     Route: 058
     Dates: start: 20230818
  3. CERTOLIZUMAB PEGOL [Suspect]
     Active Substance: CERTOLIZUMAB PEGOL
     Dosage: 200 MILLIGRAM, EV 2 WEEKS(QOW)
     Route: 058

REACTIONS (6)
  - Herpes ophthalmic [Recovered/Resolved]
  - Limb operation [Unknown]
  - Eye infection [Recovered/Resolved]
  - Infection [Unknown]
  - Localised infection [Unknown]
  - Alopecia [Unknown]

NARRATIVE: CASE EVENT DATE: 20230901
